FAERS Safety Report 5257064-5 (Version None)
Quarter: 2007Q1

REPORT INFORMATION
  Report Type: 
  Country: None (occurrence: None)
  Receive Date: 20070302
  Receipt Date: 20070215
  Transmission Date: 20070707
  Serious: No
  Sender: FDA-Public Use
  Company Number: 2007US003559

PATIENT
  Sex: Male

DRUGS (2)
  1. ALOXI [Suspect]
     Indication: PROPHYLAXIS OF NAUSEA AND VOMITING
     Dosage: SINGLE, INTRAVENOUS
     Route: 042
  2. SOLU-MEDROL [Suspect]

REACTIONS (6)
  - BACK PAIN [None]
  - BLOOD PRESSURE DECREASED [None]
  - CARDIOVASCULAR DISORDER [None]
  - DYSPNOEA [None]
  - ERYTHEMA [None]
  - FLUSHING [None]
